FAERS Safety Report 5764558-2 (Version None)
Quarter: 2008Q2

REPORT INFORMATION
  Report Type: 
  Country: None (occurrence: None)
  Receive Date: 20080610
  Receipt Date: 20080529
  Transmission Date: 20081010
  Serious: Yes (Other)
  Sender: FDA-Public Use
  Company Number: CN-PFIZER INC-2008046352

PATIENT
  Age: 5 Year
  Sex: Male

DRUGS (1)
  1. ZITHROMAX [Suspect]
     Indication: NASOPHARYNGITIS
     Route: 042
     Dates: start: 20071204, end: 20071206

REACTIONS (3)
  - ASTHENIA [None]
  - DECREASED APPETITE [None]
  - LIVER FUNCTION TEST ABNORMAL [None]
